FAERS Safety Report 13377436 (Version 1)
Quarter: 2017Q1

REPORT INFORMATION
  Report Type: Spontaneous
  Country: US (occurrence: US)
  Receive Date: 20170328
  Receipt Date: 20170328
  Transmission Date: 20170429
  Serious: Yes (Other)
  Sender: FDA-Public Use
  Company Number: US-GLAXOSMITHKLINE-US2017042494

PATIENT
  Age: 65 Year
  Sex: Female

DRUGS (1)
  1. FLOVENT [Suspect]
     Active Substance: FLUTICASONE PROPIONATE
     Indication: PRODUCT USED FOR UNKNOWN INDICATION
     Dosage: 1 PUFF(S), BID
     Route: 055
     Dates: start: 20170131

REACTIONS (4)
  - Adrenal insufficiency [Unknown]
  - Expired product administered [Unknown]
  - Back pain [Unknown]
  - Device use error [Unknown]

NARRATIVE: CASE EVENT DATE: 20170324
